FAERS Safety Report 5148182-0 (Version None)
Quarter: 2006Q4

REPORT INFORMATION
  Report Type: 
  Country: None (occurrence: None)
  Receive Date: 20061110
  Receipt Date: 20061030
  Transmission Date: 20070319
  Serious: Yes (Hospitalization, Other)
  Sender: FDA-Public Use
  Company Number: US-ELI_LILLY_AND_COMPANY-US200610005510

PATIENT
  Age: 89 Year
  Sex: Male

DRUGS (2)
  1. ZYPREXA [Suspect]
     Indication: DEMENTIA
     Dosage: 2.5 MG, UNKNOWN
     Route: 065
     Dates: start: 20061020
  2. ZYPREXA [Suspect]
     Dosage: 5 MG, UNKNOWN
     Route: 065
     Dates: start: 20061020

REACTIONS (1)
  - SUPRAVENTRICULAR TACHYCARDIA [None]
